FAERS Safety Report 9422479 (Version 1)
Quarter: 2013Q3

REPORT INFORMATION
  Report Type: Spontaneous
  Country: BR (occurrence: BR)
  Receive Date: 20130726
  Receipt Date: 20130726
  Transmission Date: 20140515
  Serious: Yes (Other)
  Sender: FDA-Public Use
  Company Number: BR-ELI_LILLY_AND_COMPANY-BR201307005810

PATIENT
  Age: 69 Year
  Sex: Male

DRUGS (5)
  1. CIALIS [Suspect]
     Indication: ERECTILE DYSFUNCTION
     Dosage: 5 MG, QD
     Route: 048
     Dates: start: 20130704
  2. CIALIS [Suspect]
     Indication: URINE FLOW DECREASED
  3. ARADOIS [Concomitant]
     Dosage: UNK, UNKNOWN
     Route: 065
  4. MODURETIC [Concomitant]
     Dosage: UNK, UNKNOWN
     Route: 065
  5. EXODUS [Concomitant]
     Dosage: UNK, UNKNOWN

REACTIONS (4)
  - Deafness [Not Recovered/Not Resolved]
  - Retching [Not Recovered/Not Resolved]
  - Gastrooesophageal reflux disease [Not Recovered/Not Resolved]
  - Dyspepsia [Not Recovered/Not Resolved]
